FAERS Safety Report 25751801 (Version 1)
Quarter: 2025Q3

REPORT INFORMATION
  Report Type: Spontaneous
  Country: US (occurrence: None)
  Receive Date: 20250901
  Receipt Date: 20250901
  Transmission Date: 20251021
  Serious: Yes (Disabling)
  Sender: FDA-CTU
  Company Number: None

PATIENT
  Age: 65 Year
  Sex: Male
  Weight: 73.8 kg

DRUGS (5)
  1. ENTACAPONE [Suspect]
     Active Substance: ENTACAPONE
     Indication: Parkinson^s disease
     Dosage: 90 TABLETS 3 TIMES  DAY ORAL
     Route: 048
     Dates: start: 20250825, end: 20250831
  2. LEVODOPA [Concomitant]
     Active Substance: LEVODOPA
  3. CARBIDOPA [Concomitant]
     Active Substance: CARBIDOPA
  4. DUPIXENT [Concomitant]
     Active Substance: DUPILUMAB
  5. Miralax fiber [Concomitant]

REACTIONS (5)
  - Arthralgia [None]
  - Muscle spasms [None]
  - Fatigue [None]
  - Chromaturia [None]
  - Therapy cessation [None]

NARRATIVE: CASE EVENT DATE: 20250825
